FAERS Safety Report 9391882 (Version 2)
Quarter: 2013Q3

REPORT INFORMATION
  Report Type: Spontaneous
  Country: CZ (occurrence: CZ)
  Receive Date: 20130709
  Receipt Date: 20130726
  Transmission Date: 20140515
  Serious: Yes (Hospitalization, Other)
  Sender: FDA-Public Use
  Company Number: CZ-BAXTER-2013BAX025728

PATIENT
  Age: 45 Year
  Sex: Female

DRUGS (18)
  1. ENDOXAN 1G [Suspect]
     Indication: CHEMOTHERAPY
     Dosage: AC-T
     Route: 065
  2. ENDOXAN 1G [Suspect]
     Indication: BREAST CANCER METASTATIC
     Dosage: 600 MG/M2
     Route: 065
  3. ENDOXAN 1G [Suspect]
     Dosage: REDUCED BY 25% FOR THE THIRD CYCLE
     Route: 065
  4. MYOCET [Suspect]
     Indication: CHEMOTHERAPY
     Dosage: 60 MG/M2
     Route: 065
  5. MYOCET [Suspect]
     Indication: BREAST CANCER METASTATIC
     Dosage: REDUCED BY 25% FORTHE THIRD CYCLE
     Route: 065
  6. MYOCET [Suspect]
     Dosage: 4TH CYCLE DOSE REDUCED TO 75%
     Route: 065
  7. MYOCET [Suspect]
     Dosage: 45 MG/M2 5TH AND 6TH CYCLE
     Route: 065
  8. CAPECITABINE [Suspect]
     Indication: PALLIATIVE CARE
     Route: 065
  9. VINORELBINE [Suspect]
     Indication: PALLIATIVE CARE
     Route: 065
  10. DOCETAXEL [Suspect]
     Indication: CHEMOTHERAPY
     Route: 065
  11. LETROZOLE [Concomitant]
     Indication: HORMONE THERAPY
     Route: 065
  12. OXAZEPAM [Concomitant]
     Indication: PRODUCT USED FOR UNKNOWN INDICATION
     Route: 065
  13. CITALOPRAM [Concomitant]
     Indication: PRODUCT USED FOR UNKNOWN INDICATION
  14. ALGIFEN [Concomitant]
     Indication: PRODUCT USED FOR UNKNOWN INDICATION
     Route: 065
  15. ZARZIO [Concomitant]
     Indication: PROPHYLAXIS
     Dosage: 7 DOSES
  16. ZARZIO [Concomitant]
     Dosage: 5 DOSES AFTER EACH CYCLE
     Route: 065
  17. NEULASTA [Concomitant]
     Indication: PROPHYLAXIS
     Dosage: 24 HOURS AFTER CHEMOTHERAPY
     Route: 058
  18. HARTMANN^S SOLUTION [Concomitant]
     Indication: FLUID REPLACEMENT

REACTIONS (9)
  - Neutropenia [Recovered/Resolved]
  - Febrile neutropenia [Recovered/Resolved]
  - Bone marrow failure [Recovered/Resolved]
  - Headache [Unknown]
  - Asthenia [Unknown]
  - Fatigue [Unknown]
  - Dyspepsia [Unknown]
  - Dysuria [Unknown]
  - Leukopenia [Recovered/Resolved]
